FAERS Safety Report 8577285-3 (Version None)
Quarter: 2012Q3

REPORT INFORMATION
  Report Type: 
  Country: None (occurrence: None)
  Receive Date: 20120807
  Receipt Date: 20120730
  Transmission Date: 20120928
  Serious: Yes (Hospitalization)
  Sender: FDA-Public Use
  Company Number: US-ABBOTT-12P-163-0962073-00

PATIENT
  Sex: Male
  Weight: 99.88 kg

DRUGS (4)
  1. METHOTREXATE [Concomitant]
     Indication: RHEUMATOID ARTHRITIS
  2. HUMIRA [Suspect]
     Indication: RHEUMATOID ARTHRITIS
  3. FOLIC ACID [Concomitant]
     Indication: PRODUCT USED FOR UNKNOWN INDICATION
  4. ASPIRIN [Concomitant]
     Indication: PRODUCT USED FOR UNKNOWN INDICATION

REACTIONS (11)
  - TYPE 2 DIABETES MELLITUS [None]
  - MALAISE [None]
  - RHEUMATOID ARTHRITIS [None]
  - PAIN [None]
  - UPPER RESPIRATORY TRACT INFECTION [None]
  - OSTEOPENIA [None]
  - MOBILITY DECREASED [None]
  - ASTHENIA [None]
  - MEMORY IMPAIRMENT [None]
  - INFECTION [None]
  - LETHARGY [None]
